FAERS Safety Report 18813606 (Version 1)
Quarter: 2021Q1

REPORT INFORMATION
  Report Type: Spontaneous
  Country: US (occurrence: US)
  Receive Date: 20210201
  Receipt Date: 20210201
  Transmission Date: 20210419
  Serious: No
  Sender: FDA-Public Use
  Company Number: US-MTPC-MTDA2021-0002494

PATIENT
  Sex: Male

DRUGS (2)
  1. RADICAVA [Suspect]
     Active Substance: EDARAVONE
     Indication: AMYOTROPHIC LATERAL SCLEROSIS
     Dosage: 60 MILLIGRAMS OVER 60 MINS QD FOR 14 DAYS, FOLLOWED BY A 14?DAY DRUG?FREE PERIOD
     Route: 042
  2. RADICAVA [Suspect]
     Active Substance: EDARAVONE
     Dosage: 60 MILLIGRAMS OVER 60 MINS QD FOR  10 DAYS OUT OF 14 DAYS, FOLLOWED BY A 14?DAY DRUG?FREE PERIOD
     Route: 042

REACTIONS (1)
  - Dysgraphia [Not Recovered/Not Resolved]
